FAERS Safety Report 19308356 (Version 1)
Quarter: 2021Q2

REPORT INFORMATION
  Report Type: Report from Study
  Country: US (occurrence: US)
  Receive Date: 20210525
  Receipt Date: 20210525
  Transmission Date: 20210717
  Serious: Yes (Hospitalization)
  Sender: FDA-Public Use
  Company Number: US-SEATTLE GENETICS-2021SGN01272

PATIENT
  Sex: Female

DRUGS (3)
  1. CAPECITABINE. [Concomitant]
     Active Substance: CAPECITABINE
     Dosage: 1000 MG, BID
  2. HERCEPTIN [Concomitant]
     Active Substance: TRASTUZUMAB
  3. TUCATINIB [Suspect]
     Active Substance: TUCATINIB
     Indication: BREAST CANCER FEMALE

REACTIONS (12)
  - Diarrhoea [Recovering/Resolving]
  - Insomnia [Recovered/Resolved]
  - Cough [Unknown]
  - Dyspnoea exertional [Unknown]
  - Therapy change [Unknown]
  - Fatigue [Recovering/Resolving]
  - Laboratory test abnormal [Unknown]
  - Hepatic enzyme increased [Recovering/Resolving]
  - Hepatic enzyme abnormal [Unknown]
  - Pleural effusion [Unknown]
  - Dyspnoea [Unknown]
  - Platelet count decreased [Unknown]
